FAERS Safety Report 16215388 (Version 1)
Quarter: 2019Q2

REPORT INFORMATION
  Report Type: Spontaneous
  Country: US (occurrence: US)
  Receive Date: 20190418
  Receipt Date: 20190418
  Transmission Date: 20190711
  Serious: No
  Sender: FDA-Public Use
  Company Number: None

PATIENT
  Age: 31 Year
  Sex: Female
  Weight: 82.35 kg

DRUGS (1)
  1. ULTRA-POTENT BRIGHTENING SERUM [Suspect]
     Active Substance: HYDROQUINONE
     Indication: SKIN HYPERPIGMENTATION
     Route: 061

REACTIONS (4)
  - Skin discolouration [None]
  - Product quality issue [None]
  - Application site pain [None]
  - Drug ineffective [None]

NARRATIVE: CASE EVENT DATE: 20180926
